FAERS Safety Report 6736473-9 (Version None)
Quarter: 2010Q2

REPORT INFORMATION
  Report Type: 
  Country: None (occurrence: None)
  Receive Date: 20100521
  Receipt Date: 20100518
  Transmission Date: 20101027
  Serious: Yes (Death, Hospitalization)
  Sender: FDA-Public Use
  Company Number: IN-BRISTOL-MYERS SQUIBB COMPANY-15098700

PATIENT
  Age: 67 Year
  Sex: Male
  Weight: 64 kg

DRUGS (13)
  1. CISPLATIN [Suspect]
     Indication: NON-SMALL CELL LUNG CANCER
     Dosage: DAY 1 EVERY 21 DAYS.LAST DOSE ON 29-MAR-2010
     Route: 042
     Dates: start: 20100308
  2. ALIMTA [Suspect]
     Indication: NON-SMALL CELL LUNG CANCER
     Dosage: DAY 1 EVERY 21 DAYS.LAST DOSE ON 29-MAR-2010
     Route: 042
     Dates: start: 20100308
  3. CODEINE SULFATE [Concomitant]
     Indication: COUGH
     Dosage: FORMULATION: SYRUP
     Dates: start: 20100326, end: 20100430
  4. SODIUM PICOSULFATE [Concomitant]
     Indication: CONSTIPATION
     Dosage: FORMULATION: TABLET
     Dates: end: 20100430
  5. CETRIZINE [Concomitant]
     Indication: HYPERSENSITIVITY
     Dosage: FORMULATION: TABLET
     Dates: start: 20100416, end: 20100430
  6. PHENYLPROPANOLAMINE [Concomitant]
     Indication: HYPERSENSITIVITY
     Dosage: FORMULATION: TABLET
     Dates: start: 20100416, end: 20100430
  7. RABEPRAZOLE SODIUM [Concomitant]
     Indication: DIABETES MELLITUS
     Dates: start: 20100306, end: 20100430
  8. FOLIC ACID [Concomitant]
     Indication: PROPHYLAXIS
     Dosage: FORMULATION: TABLET
     Dates: start: 20100302, end: 20100430
  9. VITAMIN B-12 [Concomitant]
     Indication: PROPHYLAXIS
     Dates: start: 20100302, end: 20100430
  10. DEXAMETHASONE [Concomitant]
     Indication: PROPHYLAXIS
     Dosage: FORMULATION: TABLET
     Dates: start: 20100307, end: 20100430
  11. TELMISARTAN [Concomitant]
     Indication: HYPERTENSION
  12. THEOPHYLLINE [Concomitant]
     Indication: DYSPNOEA
     Dates: start: 20100302, end: 20100430
  13. ACEFYLLINE PIPERAZINE [Concomitant]
     Indication: DYSPNOEA
     Dosage: TABLET
     Dates: start: 20100302, end: 20100330

REACTIONS (3)
  - CARDIO-RESPIRATORY ARREST [None]
  - ORAL CANDIDIASIS [None]
  - STOMATITIS [None]
